FAERS Safety Report 7077446-9 (Version None)
Quarter: 2010Q4

REPORT INFORMATION
  Report Type: 
  Country: None (occurrence: None)
  Receive Date: 20101101
  Receipt Date: 20101021
  Transmission Date: 20110411
  Serious: Yes (Hospitalization, Other)
  Sender: FDA-Public Use
  Company Number: US-JNJFOC-20101006492

PATIENT
  Sex: Female
  Weight: 38.5 kg

DRUGS (6)
  1. INFLIXIMAB, RECOMBINANT [Suspect]
     Indication: CROHN'S DISEASE
     Route: 042
  2. INFLIXIMAB, RECOMBINANT [Suspect]
     Route: 042
  3. MESALAMINE [Concomitant]
     Route: 048
  4. MERCAPTOPURINE [Concomitant]
  5. METRONIDAZOLE [Concomitant]
  6. PREVACID [Concomitant]

REACTIONS (1)
  - CROHN'S DISEASE [None]
